FAERS Safety Report 12802158 (Version 1)
Quarter: 2016Q3

REPORT INFORMATION
  Report Type: Spontaneous
  Country: US (occurrence: US)
  Receive Date: 20160930
  Receipt Date: 20160930
  Transmission Date: 20161109
  Serious: Yes (Other)
  Sender: FDA-Public Use
  Company Number: None

PATIENT
  Age: 39 Year
  Sex: Female
  Weight: 63 kg

DRUGS (2)
  1. ESCITALOPRAM [Concomitant]
     Active Substance: ESCITALOPRAM OXALATE
  2. LEVETIRACETAM. [Suspect]
     Active Substance: LEVETIRACETAM
     Indication: EPILEPSY
     Dosage: ?          QUANTITY:4 TABLET(S);?
     Route: 048
     Dates: start: 20160725, end: 20160909

REACTIONS (3)
  - Fall [None]
  - Head injury [None]
  - Epilepsy [None]

NARRATIVE: CASE EVENT DATE: 20160805
